FAERS Safety Report 16939389 (Version 1)
Quarter: 2019Q4

REPORT INFORMATION
  Report Type: Spontaneous
  Country: CA (occurrence: CA)
  Receive Date: 20191021
  Receipt Date: 20191021
  Transmission Date: 20200122
  Serious: Yes (Other)
  Sender: FDA-Public Use
  Company Number: CA-ORION CORPORATION ORION PHARMA-TREX2019-4434

PATIENT
  Sex: Female

DRUGS (2)
  1. FOLIC ACID. [Concomitant]
     Active Substance: FOLIC ACID
     Route: 065
  2. METHOTREXATE (TRADE NAME UNKNOWN) [Suspect]
     Active Substance: METHOTREXATE
     Indication: PRODUCT USED FOR UNKNOWN INDICATION
     Route: 048

REACTIONS (8)
  - Overdose [Unknown]
  - Haematochezia [Unknown]
  - Diarrhoea [Unknown]
  - Medication error [Unknown]
  - Circumstance or information capable of leading to medication error [Unknown]
  - Vomiting [Unknown]
  - Oral mucosal blistering [Unknown]
  - Product use issue [Unknown]
